FAERS Safety Report 4577434-8 (Version None)
Quarter: 2005Q1

REPORT INFORMATION
  Report Type: 
  Country: None (occurrence: None)
  Receive Date: 20050208
  Receipt Date: 20050124
  Transmission Date: 20050727
  Serious: Yes (Hospitalization)
  Sender: FDA-Public Use
  Company Number: 6012765

PATIENT
  Age: 88 Year
  Sex: Female

DRUGS (10)
  1. EMCONCOR (TABLETS) (BISOPROLOL FUMARATE) [Suspect]
     Indication: ATRIAL FIBRILLATION
     Dosage: 5 MG, ORAL
     Route: 048
     Dates: start: 20040705, end: 20040716
  2. PERSANTIN DEPOT (DIPYRIDAMOLE) [Concomitant]
  3. NITROMEX (GLYCERYL TRINITRATE) [Concomitant]
  4. CHLOROMYCETIN (CHLORAMPHENICOL) [Concomitant]
  5. PROPAVAN (PROPIOMAZINE MALEATE) [Concomitant]
  6. BEHEPAN (CYANOCOBALAMIN) [Concomitant]
  7. FUROSEMIDE [Concomitant]
  8. AMILORID NM PHARMA (AMILORIDE HYDROCHLORIDE) [Concomitant]
  9. ASPIRIN [Concomitant]
  10. OESTRIOL NM PHARMA (ESTRIOL) [Concomitant]

REACTIONS (3)
  - BRADYCARDIA [None]
  - ELECTROCARDIOGRAM QT PROLONGED [None]
  - RESPIRATORY DISORDER [None]
